FAERS Safety Report 6941351-6 (Version None)
Quarter: 2010Q3

REPORT INFORMATION
  Report Type: 
  Country: None (occurrence: None)
  Receive Date: 20100825
  Receipt Date: 20100811
  Transmission Date: 20110219
  Serious: Yes (Other)
  Sender: FDA-Public Use
  Company Number: PHHY2010US53939

PATIENT
  Age: 67 Year
  Sex: Male

DRUGS (1)
  1. IMATINIB [Suspect]
     Indication: CHRONIC MYELOID LEUKAEMIA
     Dosage: 400 MG DAILY
     Route: 048
     Dates: start: 20021201

REACTIONS (5)
  - CEREBROVASCULAR ACCIDENT [None]
  - GENE MUTATION IDENTIFICATION TEST POSITIVE [None]
  - ISCHAEMIA [None]
  - PLATELET COUNT INCREASED [None]
  - POLYCYTHAEMIA VERA [None]
